FAERS Safety Report 8098570-8 (Version None)
Quarter: 2012Q1

REPORT INFORMATION
  Report Type: 
  Country: None (occurrence: None)
  Receive Date: 20120129
  Receipt Date: 20110915
  Transmission Date: 20120608
  Serious: No
  Sender: FDA-Public Use
  Company Number: US-ABBOTT-11P-163-0854876-00

PATIENT
  Sex: Female
  Weight: 51.302 kg

DRUGS (3)
  1. HUMIRA [Suspect]
     Dates: start: 20110801, end: 20110801
  2. HUMIRA [Suspect]
     Indication: CROHN'S DISEASE
     Dates: start: 20110801, end: 20110801
  3. HUMIRA [Suspect]
     Dates: start: 20110901

REACTIONS (2)
  - JOINT STIFFNESS [None]
  - NASOPHARYNGITIS [None]
